FAERS Safety Report 9888977 (Version 1)
Quarter: 2014Q1

REPORT INFORMATION
  Report Type: Spontaneous
  Country: GB (occurrence: GB)
  Receive Date: 20140211
  Receipt Date: 20140211
  Transmission Date: 20141002
  Serious: Yes (Other)
  Sender: FDA-Public Use
  Company Number: GB-WATSON-2013-24791

PATIENT
  Age: 71 Year
  Sex: Male

DRUGS (2)
  1. ATENOLOL (UNKNOWN) [Suspect]
     Indication: HYPERTENSION
     Dosage: 25 MG, UNKNOWN; TABLET
     Route: 048
     Dates: start: 20130405, end: 20130415
  2. ATENOLOL (UNKNOWN) [Suspect]
     Dosage: 25 MG, UNKNOWN
     Route: 065
     Dates: start: 20130415

REACTIONS (7)
  - Anxiety [Recovered/Resolved]
  - Adverse drug reaction [Recovered/Resolved]
  - Malaise [Recovered/Resolved]
  - Panic attack [Recovered/Resolved]
  - Tremor [Recovered/Resolved]
  - Nausea [Recovered/Resolved]
  - Insomnia [Recovered/Resolved]
